FAERS Safety Report 18225496 (Version 4)
Quarter: 2020Q4

REPORT INFORMATION
  Report Type: Spontaneous
  Country: JP (occurrence: JP)
  Receive Date: 20200903
  Receipt Date: 20201126
  Transmission Date: 20210113
  Serious: Yes (Hospitalization, Other)
  Sender: FDA-Public Use
  Company Number: JP-UNITED THERAPEUTICS-UNT-2020-003559

PATIENT
  Age: 34 Year
  Sex: Female
  Weight: 53 kg

DRUGS (5)
  1. REMODULIN [Suspect]
     Active Substance: TREPROSTINIL
     Dosage: 0.126 ?G/KG, CONTINUING
     Route: 058
     Dates: start: 202008
  2. UPTRAVI [Concomitant]
     Active Substance: SELEXIPAG
     Indication: PULMONARY ARTERIAL HYPERTENSION
     Dosage: 3.2 MG, Q12H
     Route: 048
     Dates: start: 201708
  3. ADCIRCA [Concomitant]
     Active Substance: TADALAFIL
     Indication: PULMONARY ARTERIAL HYPERTENSION
     Dosage: 40 MG, Q12H
     Route: 048
     Dates: start: 201702
  4. OPSUMIT [Concomitant]
     Active Substance: MACITENTAN
     Indication: PULMONARY ARTERIAL HYPERTENSION
     Dosage: 10 MG, QD
     Route: 048
     Dates: start: 201702
  5. REMODULIN [Suspect]
     Active Substance: TREPROSTINIL
     Indication: PULMONARY ARTERIAL HYPERTENSION
     Dosage: UNK, CONTINUING
     Route: 058
     Dates: start: 20200226

REACTIONS (6)
  - Infusion site pain [Recovering/Resolving]
  - Infusion site warmth [Recovering/Resolving]
  - Rash [Recovering/Resolving]
  - Right ventricular failure [Recovering/Resolving]
  - Infusion site erythema [Recovering/Resolving]
  - Infusion site induration [Recovered/Resolved]

NARRATIVE: CASE EVENT DATE: 2020
